FAERS Safety Report 12544828 (Version 1)
Quarter: 2016Q3

REPORT INFORMATION
  Report Type: Spontaneous
  Country: US (occurrence: US)
  Receive Date: 20160711
  Receipt Date: 20160711
  Transmission Date: 20161109
  Serious: No
  Sender: FDA-Public Use
  Company Number: US-TAKEDA-2016TUS011548

PATIENT

DRUGS (3)
  1. VORTIOXETINE [Suspect]
     Active Substance: VORTIOXETINE
     Indication: GENERALISED ANXIETY DISORDER
  2. VORTIOXETINE [Suspect]
     Active Substance: VORTIOXETINE
     Indication: PANIC DISORDER
  3. VORTIOXETINE [Suspect]
     Active Substance: VORTIOXETINE
     Indication: OBSESSIVE-COMPULSIVE DISORDER
     Dosage: 30 MG, UNK
     Route: 065

REACTIONS (2)
  - No adverse event [Unknown]
  - Drug prescribing error [Unknown]
